FAERS Safety Report 17315144 (Version 1)
Quarter: 2020Q1

REPORT INFORMATION
  Report Type: Spontaneous
  Country: TW (occurrence: TW)
  Receive Date: 20200124
  Receipt Date: 20200124
  Transmission Date: 20200409
  Serious: Yes (Other)
  Sender: FDA-Public Use
  Company Number: NVSC2020TW016925

PATIENT
  Age: 20 Year
  Sex: Female

DRUGS (6)
  1. COLCHICINE. [Suspect]
     Active Substance: COLCHICINE
     Indication: IMMUNE THROMBOCYTOPENIC PURPURA
     Dosage: 0.5 MG, QD
     Route: 065
  2. DANAZOL. [Suspect]
     Active Substance: DANAZOL
     Indication: IMMUNE THROMBOCYTOPENIC PURPURA
     Dosage: 1200 MG, QOD
     Route: 065
  3. FOLIC ACID. [Suspect]
     Active Substance: FOLIC ACID
     Indication: IMMUNE THROMBOCYTOPENIC PURPURA
     Dosage: 5 MG, QD
     Route: 065
  4. PREDNISOLONE. [Suspect]
     Active Substance: PREDNISOLONE
     Indication: IMMUNE THROMBOCYTOPENIC PURPURA
     Dosage: 30 MG, QD
     Route: 065
  5. FAMOTIDINE. [Suspect]
     Active Substance: FAMOTIDINE
     Indication: IMMUNE THROMBOCYTOPENIC PURPURA
     Dosage: 20 MG, QD
     Route: 065
  6. MAGNESIUM OXIDE. [Suspect]
     Active Substance: MAGNESIUM OXIDE
     Indication: IMMUNE THROMBOCYTOPENIC PURPURA
     Dosage: 250 MG, TID
     Route: 065

REACTIONS (8)
  - Toxic epidermal necrolysis [Unknown]
  - Stomatitis [Unknown]
  - Skin necrosis [Unknown]
  - Conjunctivitis [Unknown]
  - Rash vesicular [Unknown]
  - Erythema multiforme [Unknown]
  - Product use in unapproved indication [Unknown]
  - Pyrexia [Unknown]
